FAERS Safety Report 13212992 (Version 3)
Quarter: 2017Q1

REPORT INFORMATION
  Report Type: Spontaneous
  Country: US (occurrence: US)
  Receive Date: 20170210
  Receipt Date: 20170324
  Transmission Date: 20170428
  Serious: Yes (Life-Threatening, Hospitalization)
  Sender: FDA-Public Use
  Company Number: US-JNJFOC-20170209670

PATIENT
  Age: 4 Decade
  Sex: Male

DRUGS (2)
  1. LEVAMISOLE HYDROCHLORIDE [Suspect]
     Active Substance: LEVAMISOLE HYDROCHLORIDE
     Indication: PRODUCT USED FOR UNKNOWN INDICATION
     Route: 065
     Dates: start: 20160623
  2. FENTANYL. [Suspect]
     Active Substance: FENTANYL
     Indication: PRODUCT USED FOR UNKNOWN INDICATION
     Route: 065
     Dates: start: 20160623

REACTIONS (10)
  - Hypotension [Unknown]
  - Miosis [Unknown]
  - Toxicity to various agents [Unknown]
  - Respiratory depression [Unknown]
  - Accidental exposure to product [Unknown]
  - Off label use [Unknown]
  - Bradycardia [Unknown]
  - Depressed level of consciousness [Unknown]
  - Incorrect route of drug administration [Unknown]
  - Overdose [Unknown]
